FAERS Safety Report 16139864 (Version 1)
Quarter: 2019Q1

REPORT INFORMATION
  Report Type: Spontaneous
  Country: JP (occurrence: JP)
  Receive Date: 20190331
  Receipt Date: 20190331
  Transmission Date: 20190418
  Serious: Yes (Other)
  Sender: FDA-Public Use
  Company Number: JP-INGENUS PHARMACEUTICALS, LLC-INF201903-000209

PATIENT
  Age: 57 Year
  Sex: Female

DRUGS (5)
  1. CISPLATIN. [Concomitant]
     Active Substance: CISPLATIN
     Indication: NEUROENDOCRINE CARCINOMA
  2. ETOPOSIDE. [Concomitant]
     Active Substance: ETOPOSIDE
  3. IRINOTECAN HYDROCHLORIDE. [Suspect]
     Active Substance: IRINOTECAN HYDROCHLORIDE
     Indication: NEUROENDOCRINE CARCINOMA
  4. CISPLATIN. [Concomitant]
     Active Substance: CISPLATIN
  5. ETOPOSIDE. [Concomitant]
     Active Substance: ETOPOSIDE
     Indication: NEUROENDOCRINE CARCINOMA

REACTIONS (1)
  - Liver injury [Unknown]
